FAERS Safety Report 19232125 (Version 1)
Quarter: 2021Q2

REPORT INFORMATION
  Report Type: Spontaneous
  Country: US (occurrence: US)
  Receive Date: 20210507
  Receipt Date: 20210507
  Transmission Date: 20210717
  Serious: Yes (Other)
  Sender: FDA-Public Use
  Company Number: US-STRIDES ARCOLAB LIMITED-2021SP004296

PATIENT
  Age: 51 Year
  Sex: Female

DRUGS (7)
  1. PAMIDRONIC ACID [Suspect]
     Active Substance: PAMIDRONIC ACID
     Indication: PAIN
     Dosage: UNK
     Route: 065
  2. METHADONE [Suspect]
     Active Substance: METHADONE HYDROCHLORIDE
     Dosage: METHADONE DOSE TO DECREASE BY 50 PERCENT
     Route: 065
  3. GABAPENTIN. [Suspect]
     Active Substance: GABAPENTIN
     Indication: PAIN
     Dosage: 3200 MILLIGRAM, QD
     Route: 048
  4. LIDOCAINE. [Suspect]
     Active Substance: LIDOCAINE
     Indication: PAIN
     Dosage: TOPICAL PATCHES
     Route: 061
  5. DEXAMETHASONE. [Suspect]
     Active Substance: DEXAMETHASONE
     Indication: PAIN
     Dosage: 4 MILLIGRAM, QD
     Route: 048
  6. HYDROMORPHONE [Suspect]
     Active Substance: HYDROMORPHONE
     Indication: PAIN
     Dosage: LESS THAN OR EQUAL TO APPROXIMATELY 70 MG/DAY
     Route: 065
  7. METHADONE [Suspect]
     Active Substance: METHADONE HYDROCHLORIDE
     Indication: PAIN
     Dosage: LESS THAN OR EQUAL TO APPROXIMATELY 60 MG/DAY
     Route: 065

REACTIONS (1)
  - Drug ineffective [Unknown]
